FAERS Safety Report 5404386-0 (Version None)
Quarter: 2007Q3

REPORT INFORMATION
  Report Type: 
  Country: None (occurrence: None)
  Receive Date: 20070802
  Receipt Date: 20070725
  Transmission Date: 20080115
  Serious: Yes (Death, Hospitalization)
  Sender: FDA-Public Use
  Company Number: CA-SANOFI-SYNTHELABO-A01200705903

PATIENT
  Age: 73 Year
  Sex: Male
  Weight: 78.2 kg

DRUGS (7)
  1. PLAVIX [Suspect]
     Indication: CORONARY ARTERY DISEASE
     Route: 048
     Dates: start: 19990101, end: 20070531
  2. LOSEC [Concomitant]
     Indication: STOMACH DISCOMFORT
     Route: 048
     Dates: end: 20070509
  3. BETALOC SR [Concomitant]
     Indication: CARDIAC DISORDER
     Route: 048
  4. LESCOL [Suspect]
     Indication: HYPERCHOLESTEROLAEMIA
     Route: 048
     Dates: end: 20070514
  5. TYLENOL (CAPLET) [Suspect]
     Indication: PAIN
     Route: 048
     Dates: end: 20070509
  6. GABAPENTIN [Suspect]
     Indication: NEURALGIA
     Route: 048
     Dates: end: 20070522
  7. PANTOPRAZOLE SODIUM [Concomitant]
     Indication: STOMACH DISCOMFORT
     Dosage: UNK
     Route: 048
     Dates: start: 20070509

REACTIONS (3)
  - HEPATITIS ACUTE [None]
  - HEPATORENAL SYNDROME [None]
  - HYPERBILIRUBINAEMIA [None]
